FAERS Safety Report 9162314 (Version 2)
Quarter: 2013Q2

REPORT INFORMATION
  Report Type: Spontaneous
  Country: AU (occurrence: AU)
  Receive Date: 20130314
  Receipt Date: 20130410
  Transmission Date: 20140414
  Serious: Yes (Death, Other)
  Sender: FDA-Public Use
  Company Number: PHHY2013AU024926

PATIENT
  Age: 81 Year
  Sex: Male

DRUGS (4)
  1. ACLASTA [Suspect]
     Dosage: UNK
     Route: 042
     Dates: start: 20090507
  2. ACLASTA [Suspect]
     Dosage: UNK
     Route: 042
     Dates: start: 20110505
  3. ACLASTA [Suspect]
     Dosage: UNK
     Route: 042
     Dates: start: 20120418
  4. TRICYCLIC ANTIDEPRESSANTS [Concomitant]
     Dosage: UNK UKN, UNK

REACTIONS (2)
  - Death [Fatal]
  - Pneumonia [Unknown]
